FAERS Safety Report 24976629 (Version 1)
Quarter: 2025Q1

REPORT INFORMATION
  Report Type: Report from Study
  Country: US (occurrence: US)
  Receive Date: 20250217
  Receipt Date: 20250217
  Transmission Date: 20250409
  Serious: Yes (Hospitalization)
  Sender: CSL BEHRING
  Company Number: US-BEH-2024188569

PATIENT
  Age: 75 Year
  Sex: Female
  Weight: 84.807 kg

DRUGS (1)
  1. ZEMAIRA [Suspect]
     Active Substance: .ALPHA.1-PROTEINASE INHIBITOR HUMAN
     Indication: Alpha-1 antitrypsin deficiency
     Route: 065

REACTIONS (8)
  - Influenza [Recovering/Resolving]
  - Bacterial infection [Recovering/Resolving]
  - Nasopharyngitis [Recovering/Resolving]
  - Dyspnoea [Recovering/Resolving]
  - Cough [Recovering/Resolving]
  - Rhinorrhoea [Recovering/Resolving]
  - Sputum discoloured [Recovering/Resolving]
  - Sputum increased [Recovering/Resolving]

NARRATIVE: CASE EVENT DATE: 20250114
